FAERS Safety Report 20140742 (Version 1)
Quarter: 2021Q4

REPORT INFORMATION
  Report Type: Spontaneous
  Country: BR (occurrence: BR)
  Receive Date: 20211202
  Receipt Date: 20211202
  Transmission Date: 20220303
  Serious: Yes (Other)
  Sender: FDA-Public Use
  Company Number: BR-NOVARTISPH-NVSC2020BR220554

PATIENT
  Sex: Female

DRUGS (1)
  1. TIMOLOL MALEATE\TRAVOPROST [Suspect]
     Active Substance: TIMOLOL MALEATE\TRAVOPROST
     Indication: Intraocular pressure increased
     Dosage: UNK (FLASK)
     Route: 065

REACTIONS (6)
  - Drug dependence [Unknown]
  - Eye inflammation [Unknown]
  - Eye allergy [Unknown]
  - Lacrimation increased [Unknown]
  - Sleep disorder [Unknown]
  - Eye swelling [Unknown]
